FAERS Safety Report 14456115 (Version 11)
Quarter: 2019Q2

REPORT INFORMATION
  Report Type: Spontaneous
  Country: US (occurrence: US)
  Receive Date: 20180130
  Receipt Date: 20190517
  Transmission Date: 20190711
  Serious: Yes (Hospitalization, Other)
  Sender: FDA-Public Use
  Company Number: US-BRISTOL-MYERS SQUIBB COMPANY-BMS-2018-005133

PATIENT
  Age: 72 Year
  Sex: Female

DRUGS (3)
  1. ORENCIA [Suspect]
     Active Substance: ABATACEPT
     Indication: PRODUCT USED FOR UNKNOWN INDICATION
     Dosage: 125 MG/ML, QWK
     Route: 058
     Dates: start: 201807
  2. ORENCIA [Suspect]
     Active Substance: ABATACEPT
     Indication: RHEUMATOID ARTHRITIS
     Dosage: 125 MG, QWK
     Route: 058
     Dates: start: 201711
  3. ORENCIA [Suspect]
     Active Substance: ABATACEPT
     Indication: PRODUCT USED FOR UNKNOWN INDICATION
     Dosage: 125 MG, QWK
     Route: 058

REACTIONS (13)
  - Musculoskeletal pain [Unknown]
  - Ankle fracture [Unknown]
  - Pyrexia [Unknown]
  - Furuncle [Unknown]
  - Drug ineffective [Unknown]
  - Peripheral swelling [Unknown]
  - Lip exfoliation [Unknown]
  - Malaise [Unknown]
  - Diverticulitis [Unknown]
  - Nerve compression [Unknown]
  - Precancerous skin lesion [Unknown]
  - Herpes zoster [Unknown]
  - Hair growth abnormal [Unknown]

NARRATIVE: CASE EVENT DATE: 201711
